FAERS Safety Report 20232883 (Version 2)
Quarter: 2022Q1

REPORT INFORMATION
  Report Type: Spontaneous
  Country: DE (occurrence: DE)
  Receive Date: 20211227
  Receipt Date: 20220127
  Transmission Date: 20220423
  Serious: Yes (Hospitalization, Other)
  Sender: FDA-Public Use
  Company Number: None

PATIENT
  Age: 29 Year
  Sex: Female

DRUGS (7)
  1. PROGESTERONE [Suspect]
     Active Substance: PROGESTERONE
     Indication: Assisted reproductive technology
     Dosage: 600MG DAILY FROM OCTOBER 29TH, 2021 (1 IN 1 D)
     Route: 065
     Dates: start: 20211029
  2. FOLLITROPIN BETA [Suspect]
     Active Substance: FOLLITROPIN BETA
     Indication: Assisted reproductive technology
     Dosage: 275 IU (1 IN 1 D)
     Route: 065
     Dates: start: 20211020, end: 20211020
  3. FOLLITROPIN BETA [Suspect]
     Active Substance: FOLLITROPIN BETA
     Dosage: 300 IU (1 IN 1 D)
     Route: 065
     Dates: start: 20211016, end: 20211019
  4. FOLLITROPIN BETA [Suspect]
     Active Substance: FOLLITROPIN BETA
     Dosage: 300 IU (1 IN 1 D)
     Route: 065
     Dates: start: 20211021, end: 20211025
  5. GONADOTROPHIN, CHORIONIC [Suspect]
     Active Substance: GONADOTROPHIN, CHORIONIC
     Indication: Assisted reproductive technology
     Dosage: 10000 IU (1 IN 1 D)
     Route: 065
     Dates: start: 20211027
  6. NAFARELIN ACETATE [Suspect]
     Active Substance: NAFARELIN ACETATE
     Indication: Assisted reproductive technology
     Dosage: 0.2 MG (1 IN 1 D)
     Route: 065
     Dates: start: 20211026
  7. NAFARELIN ACETATE [Suspect]
     Active Substance: NAFARELIN ACETATE
     Dosage: 0.4 MG (1D)
     Route: 065
     Dates: start: 20211002, end: 20211025

REACTIONS (3)
  - Ovarian abscess [Recovered/Resolved]
  - Abdominal discomfort [Recovered/Resolved]
  - Vulvovaginal discomfort [Recovered/Resolved]

NARRATIVE: CASE EVENT DATE: 20211030
